FAERS Safety Report 5157590-3 (Version None)
Quarter: 2006Q4

REPORT INFORMATION
  Report Type: 
  Country: None (occurrence: None)
  Receive Date: 20061127
  Receipt Date: 20061026
  Transmission Date: 20070319
  Serious: Yes (Other)
  Sender: FDA-Public Use
  Company Number: HU-ELI_LILLY_AND_COMPANY-HU200610004797

PATIENT
  Age: 30 Year
  Sex: Female

DRUGS (6)
  1. DULOXETINE HYDROCHLORIDE [Suspect]
     Indication: DEPRESSION
     Dosage: 60 MG, DAILY (1/D)
     Route: 048
     Dates: start: 20061016, end: 20061025
  2. MIANSERIN ^MERCK^ [Concomitant]
     Dosage: 45 MG, EACH EVENING
     Dates: start: 20061002, end: 20061008
  3. MIRTAZAPINE [Concomitant]
     Dosage: 45 MG, EACH EVENING
     Dates: start: 20061009, end: 20061015
  4. NEURO-B FORTE NEU [Concomitant]
     Dates: start: 20061002
  5. XANAX                                   /USA/ [Concomitant]
  6. RIVOTRIL                                /NOR/ [Concomitant]

REACTIONS (3)
  - ALANINE AMINOTRANSFERASE INCREASED [None]
  - ASPARTATE AMINOTRANSFERASE INCREASED [None]
  - GAMMA-GLUTAMYLTRANSFERASE INCREASED [None]
